FAERS Safety Report 12155813 (Version 1)
Quarter: 2016Q1

REPORT INFORMATION
  Report Type: Spontaneous
  Country: US (occurrence: US)
  Receive Date: 20160307
  Receipt Date: 20160307
  Transmission Date: 20160526
  Serious: Yes (Other)
  Sender: FDA-Public Use
  Company Number: US-TEVA-636996USA

PATIENT
  Age: 56 Year
  Sex: Female

DRUGS (9)
  1. DIVALPROEX [Suspect]
     Active Substance: DIVALPROEX SODIUM
     Dosage: 250 MG TWICE DAILY
     Route: 065
     Dates: start: 201305
  2. TRAZODONE [Suspect]
     Active Substance: TRAZODONE HYDROCHLORIDE
     Indication: SLEEP DISORDER
     Dosage: 50 MG
     Route: 065
     Dates: start: 201305
  3. DULOXETINE HYDROCHLORIDE. [Suspect]
     Active Substance: DULOXETINE HYDROCHLORIDE
     Indication: DEPRESSION
     Dosage: 40 MG ONCE DAILY
     Route: 065
     Dates: start: 201305
  4. DULOXETINE HYDROCHLORIDE. [Suspect]
     Active Substance: DULOXETINE HYDROCHLORIDE
     Indication: FIBROMYALGIA
  5. ESTRADIOL. [Suspect]
     Active Substance: ESTRADIOL
     Dosage: 1 MG ONCE A DAY
     Route: 065
     Dates: start: 200002
  6. TIZANIDINE HCL [Suspect]
     Active Substance: TIZANIDINE HYDROCHLORIDE
     Indication: MUSCLE SPASMS
     Dosage: 2 MG TWICE DAILY
     Route: 065
     Dates: start: 201305
  7. RISPERIDONE. [Suspect]
     Active Substance: RISPERIDONE
     Dosage: 1 MG ONCE A DAY
     Route: 065
     Dates: start: 201305
  8. LYRICA [Suspect]
     Active Substance: PREGABALIN
     Indication: FIBROMYALGIA
     Dosage: 50 MG TWICE DAILY
     Route: 065
     Dates: start: 201305
  9. TIZANIDINE HCL [Suspect]
     Active Substance: TIZANIDINE HYDROCHLORIDE
     Indication: MUSCLE SPASMS

REACTIONS (3)
  - Mental disorder [Unknown]
  - Disability [Unknown]
  - Product use issue [Unknown]

NARRATIVE: CASE EVENT DATE: 201305
